FAERS Safety Report 20641986 (Version 1)
Quarter: 2022Q1

REPORT INFORMATION
  Report Type: Spontaneous
  Country: US (occurrence: US)
  Receive Date: 20220328
  Receipt Date: 20220328
  Transmission Date: 20220423
  Serious: No
  Sender: FDA-Public Use
  Company Number: ALC2021US002638

PATIENT

DRUGS (1)
  1. PAZEO [Suspect]
     Active Substance: OLOPATADINE HYDROCHLORIDE
     Indication: Product used for unknown indication
     Dosage: 7 %, QD
     Route: 065

REACTIONS (3)
  - Eye swelling [Unknown]
  - Pruritus [Unknown]
  - Drug ineffective [Unknown]
